FAERS Safety Report 4738525-1 (Version None)
Quarter: 2005Q3

REPORT INFORMATION
  Report Type: 
  Country: None (occurrence: None)
  Receive Date: 20050809
  Receipt Date: 20050311
  Transmission Date: 20060218
  Serious: Yes (Hospitalization)
  Sender: FDA-Public Use
  Company Number: PHBS2005BR03703

PATIENT
  Sex: Female
  Weight: 72 kg

DRUGS (7)
  1. TOFRANIL [Suspect]
     Indication: DEPRESSION
     Dosage: 25 MG, QD
     Route: 048
     Dates: start: 20040501
  2. TOFRANIL [Suspect]
     Dosage: 25 MG, QHS
     Route: 048
     Dates: start: 20050309
  3. TOFRANIL [Suspect]
     Dosage: 25 MG, TID
     Route: 048
     Dates: start: 20050519, end: 20050705
  4. OMEPRAZOLE [Suspect]
     Indication: GASTRITIS
     Dosage: 20 MG, QD
     Route: 048
     Dates: end: 20050705
  5. DIAZEPAM [Concomitant]
     Indication: TREMOR
     Dosage: 15 MG, QD
     Route: 048
     Dates: end: 20050705
  6. VITASAY (VITAMINS AND MINERALS) [Concomitant]
     Dosage: UNK, QD
     Route: 048
     Dates: end: 20050705
  7. CLONAZEPAM [Concomitant]
     Dosage: 1 MG, QD
     Route: 048
     Dates: end: 20050705

REACTIONS (12)
  - ANXIETY [None]
  - APTYALISM [None]
  - ASTHENIA [None]
  - COUGH [None]
  - DRUG INEFFECTIVE [None]
  - DRUG INTERACTION [None]
  - DRY MOUTH [None]
  - DYSPHAGIA [None]
  - HEADACHE [None]
  - INSOMNIA [None]
  - OESOPHAGITIS [None]
  - SOMNOLENCE [None]
